FAERS Safety Report 24010860 (Version 1)
Quarter: 2024Q2

REPORT INFORMATION
  Report Type: Spontaneous
  Country: US (occurrence: None)
  Receive Date: 20240625
  Receipt Date: 20240625
  Transmission Date: 20240716
  Serious: Yes (Hospitalization)
  Sender: FDA-Public Use
  Company Number: None

PATIENT
  Sex: Female

DRUGS (1)
  1. PULMOZYME [Suspect]
     Active Substance: DORNASE ALFA
     Indication: Cystic fibrosis lung
     Dosage: FREQUENCY : DAILY;?
     Route: 055
     Dates: start: 20230921

REACTIONS (7)
  - Dyspnoea [None]
  - Cough [None]
  - Productive cough [None]
  - Wheezing [None]
  - Flatulence [None]
  - Abdominal pain upper [None]
  - Therapy interrupted [None]
